FAERS Safety Report 7641465-1 (Version None)
Quarter: 2011Q3

REPORT INFORMATION
  Report Type: 
  Country: None (occurrence: None)
  Receive Date: 20110728
  Receipt Date: 20110719
  Transmission Date: 20111222
  Serious: Yes (Other)
  Sender: FDA-Public Use
  Company Number: DE-AMGEN-DEUSP2011034658

PATIENT
  Age: 17 Year
  Sex: Male

DRUGS (11)
  1. AMLODIPINE BESYLATE [Concomitant]
     Dosage: 5 MG, UNK
  2. CELLCEPT [Concomitant]
     Dosage: 500 MG, UNK
  3. CALCET                             /00637401/ [Concomitant]
     Dosage: 950 MG, UNK
  4. NEPHROTRANS [Concomitant]
     Dosage: 840 MG, UNK
  5. LASIX [Concomitant]
     Dosage: 40 MG, UNK
  6. NEPRESOL                           /00017902/ [Concomitant]
     Dosage: UNK
  7. ARANESP [Suspect]
     Indication: NEPHROGENIC ANAEMIA
     Dosage: 40 A?G, QWK
     Route: 058
     Dates: start: 20110621
  8. TENORMIN [Concomitant]
     Dosage: 50 MG, UNK
  9. ERGOCALCIFEROL [Concomitant]
     Dosage: 2000 UNK, UNK
  10. EVEROLIMUS [Concomitant]
     Dosage: 2 MG, UNK
  11. NEORECORMON [Concomitant]

REACTIONS (5)
  - OROPHARYNGEAL PAIN [None]
  - SWELLING FACE [None]
  - HYPERSENSITIVITY [None]
  - COUGH [None]
  - LOCAL REACTION [None]
